FAERS Safety Report 5291252-7 (Version None)
Quarter: 2007Q2

REPORT INFORMATION
  Report Type: 
  Country: None (occurrence: None)
  Receive Date: 20070409
  Receipt Date: 20070328
  Transmission Date: 20071010
  Serious: Yes (Other)
  Sender: FDA-Public Use
  Company Number: TH-PFIZER INC-2007022186

PATIENT
  Age: 10 Year
  Sex: Female
  Weight: 31 kg

DRUGS (3)
  1. DILANTIN [Suspect]
     Indication: EPILEPSY
     Route: 048
     Dates: start: 20070317, end: 20070318
  2. TOPAMAX [Concomitant]
     Route: 048
  3. DEPAKENE [Concomitant]
     Route: 048

REACTIONS (3)
  - CONVULSION [None]
  - GINGIVAL HYPERTROPHY [None]
  - RASH [None]
